FAERS Safety Report 11189014 (Version 1)
Quarter: 2015Q2

REPORT INFORMATION
  Report Type: Spontaneous
  Country: US (occurrence: US)
  Receive Date: 20150615
  Receipt Date: 20150615
  Transmission Date: 20150821
  Serious: Yes (Other)
  Sender: FDA-Public Use
  Company Number: US-BAYER-2015-315858

PATIENT
  Age: 50 Year
  Sex: Male

DRUGS (2)
  1. GADAVIST [Suspect]
     Active Substance: GADOBUTROL
     Indication: DEAFNESS
  2. GADAVIST [Suspect]
     Active Substance: GADOBUTROL
     Indication: NUCLEAR MAGNETIC RESONANCE IMAGING BRAIN
     Dosage: 9 ML, ONCE
     Route: 042
     Dates: start: 20150605, end: 20150605

REACTIONS (6)
  - Ear swelling [Recovered/Resolved]
  - Lip swelling [Recovered/Resolved]
  - Swelling face [Recovered/Resolved]
  - Blood pressure decreased [Recovered/Resolved]
  - Loss of consciousness [Recovered/Resolved]
  - Eye swelling [Recovered/Resolved]

NARRATIVE: CASE EVENT DATE: 20150605
